FAERS Safety Report 11216324 (Version 1)
Quarter: 2015Q2

REPORT INFORMATION
  Report Type: Spontaneous
  Country: US (occurrence: None)
  Receive Date: 20150623
  Receipt Date: 20150623
  Transmission Date: 20150821
  Serious: No
  Sender: FDA-Public Use
  Company Number: None

PATIENT
  Age: 51 Year
  Sex: Female
  Weight: 55.79 kg

DRUGS (3)
  1. PROBIOTICS [Concomitant]
     Active Substance: PROBIOTICS NOS
  2. PANTOPRAZOLE SOD 40 MG AUROBINDO PHARMA USA [Suspect]
     Active Substance: PANTOPRAZOLE SODIUM
     Indication: DYSPEPSIA
     Dosage: 40 MG ONCE DAILY TAKEN BY MOUTH
     Route: 048
     Dates: start: 20150410, end: 20150610
  3. VITAMIN [Concomitant]
     Active Substance: VITAMINS

REACTIONS (4)
  - Diarrhoea [None]
  - Muscle spasms [None]
  - Lethargy [None]
  - Heart rate increased [None]

NARRATIVE: CASE EVENT DATE: 20150619
